FAERS Safety Report 12403267 (Version 2)
Quarter: 2016Q2

REPORT INFORMATION
  Report Type: Spontaneous
  Country: US (occurrence: US)
  Receive Date: 20160525
  Receipt Date: 20160616
  Transmission Date: 20160815
  Serious: No
  Sender: FDA-Public Use
  Company Number: US-ACTELION-A-US2016-136393

PATIENT
  Age: 55 Year
  Sex: Female

DRUGS (2)
  1. VELETRI [Suspect]
     Active Substance: EPOPROSTENOL
     Indication: PULMONARY ARTERIAL HYPERTENSION
     Dosage: 32 NG/KG, PER MIN
     Route: 042
     Dates: start: 20131028
  2. RIOCIGUAT [Concomitant]
     Active Substance: RIOCIGUAT

REACTIONS (9)
  - Limb operation [Unknown]
  - Nasal congestion [Unknown]
  - Dyspepsia [Unknown]
  - Sinus headache [Unknown]
  - Paranasal sinus discomfort [Unknown]
  - Productive cough [Unknown]
  - Seasonal allergy [Unknown]
  - Fluid retention [Unknown]
  - Weight increased [Unknown]
